FAERS Safety Report 5944352-X (Version None)
Quarter: 2008Q4

REPORT INFORMATION
  Report Type: 
  Country: None (occurrence: None)
  Receive Date: 20081107
  Receipt Date: 20081031
  Transmission Date: 20090506
  Serious: Yes (Other)
  Sender: FDA-Public Use
  Company Number: US-RANBAXY-2008US-18702

PATIENT

DRUGS (1)
  1. CLINDAMYCIN HCL [Suspect]
     Indication: TOOTH ABSCESS
     Dosage: UNK, UNK
     Route: 048
     Dates: start: 20070725

REACTIONS (6)
  - ASTHENIA [None]
  - EATING DISORDER [None]
  - IRRITABLE BOWEL SYNDROME [None]
  - MALAISE [None]
  - PSEUDOMEMBRANOUS COLITIS [None]
  - WEIGHT DECREASED [None]
